FAERS Safety Report 18274295 (Version 1)
Quarter: 2020Q3

REPORT INFORMATION
  Report Type: Spontaneous
  Country: US (occurrence: US)
  Receive Date: 20200916
  Receipt Date: 20200916
  Transmission Date: 20201103
  Serious: No
  Sender: FDA-Public Use
  Company Number: US-BRISTOL-MYERS SQUIBB COMPANY-BMS-2020-075665

PATIENT
  Sex: Female
  Weight: 67 kg

DRUGS (1)
  1. OPDIVO [Suspect]
     Active Substance: NIVOLUMAB
     Indication: LUNG DISORDER
     Dosage: 480 MILLIGRAM, Q4WK
     Route: 042
     Dates: start: 20180419

REACTIONS (2)
  - Malaise [Unknown]
  - Abdominal discomfort [Unknown]
